FAERS Safety Report 21664042 (Version 1)
Quarter: 2022Q4

REPORT INFORMATION
  Report Type: Spontaneous
  Country: US (occurrence: US)
  Receive Date: 20221130
  Receipt Date: 20221130
  Transmission Date: 20230112
  Serious: Yes (Other)
  Sender: FDA-Public Use
  Company Number: US-GILEAD-2022-0606824

PATIENT
  Age: 64 Year
  Sex: Female

DRUGS (1)
  1. TRODELVY [Suspect]
     Active Substance: SACITUZUMAB GOVITECAN-HZIY
     Indication: Breast cancer metastatic
     Dosage: UNK
     Route: 065
     Dates: start: 202109, end: 202203

REACTIONS (6)
  - Disease progression [Unknown]
  - Cystitis [Unknown]
  - Device issue [Unknown]
  - Tumour marker increased [Unknown]
  - Stress [Unknown]
  - Surgery [Unknown]

NARRATIVE: CASE EVENT DATE: 20211001
